FAERS Safety Report 9642120 (Version 2)
Quarter: 2013Q4

REPORT INFORMATION
  Report Type: Report from Study
  Country: US (occurrence: US)
  Receive Date: 20131023
  Receipt Date: 20131106
  Transmission Date: 20140711
  Serious: No
  Sender: FDA-Public Use
  Company Number: US-BAXTER-2013BAX041133

PATIENT
  Sex: Female

DRUGS (5)
  1. GAMMAGARD LIQUID [Suspect]
     Indication: PRODUCT USED FOR UNKNOWN INDICATION
     Route: 042
  2. BENADRYL [Concomitant]
     Indication: PREMEDICATION
  3. BENADRYL [Concomitant]
     Indication: ADVERSE EVENT
  4. ADVIL [Concomitant]
     Indication: PREMEDICATION
  5. ADVIL [Concomitant]
     Indication: ADVERSE EVENT

REACTIONS (6)
  - Pain [Unknown]
  - Myalgia [Unknown]
  - Tremor [Unknown]
  - Eye haemorrhage [Unknown]
  - Fatigue [Unknown]
  - Headache [Unknown]
